FAERS Safety Report 21614873 (Version 25)
Quarter: 2024Q3

REPORT INFORMATION
  Report Type: Spontaneous
  Country: US (occurrence: US)
  Receive Date: 20221118
  Receipt Date: 20240919
  Transmission Date: 20241017
  Serious: Yes (Hospitalization, Other)
  Sender: PFIZER
  Company Number: US-PFIZER INC-PV202200105156

PATIENT
  Age: 73 Year
  Sex: Female
  Weight: 68.04 kg

DRUGS (23)
  1. PREMARIN [Suspect]
     Active Substance: ESTROGENS, CONJUGATED
     Indication: Radical hysterectomy
     Dosage: 1 TAB PER ORAL BID,  #180 TABS, 90 DAYS SUPPLY, REFILL:2
     Route: 048
  2. PREMARIN [Suspect]
     Active Substance: ESTROGENS, CONJUGATED
     Dosage: 1.25MG IN THE EVENING/ 1.25MG TABLET ONCE A DAY BY MOUTH
     Route: 048
     Dates: end: 202208
  3. PREMARIN [Suspect]
     Active Substance: ESTROGENS, CONJUGATED
     Dosage: 1.25 MG
  4. CARBIDOPA LEVODOPA [Concomitant]
     Active Substance: CARBIDOPA\LEVODOPA
     Indication: Parkinson^s disease
     Dosage: UNK (EVERY 4 HOUR)
  5. POTASSIUM CHLORIDE [Concomitant]
     Active Substance: POTASSIUM CHLORIDE
     Dosage: 10 MEQ, 1X/DAY (10 MEQ IN MORNING)
  6. VENLAFAXINE [Concomitant]
     Active Substance: VENLAFAXINE HYDROCHLORIDE
     Indication: Depression
     Dosage: 150 MG, 1X/DAY (150MG IN MORNING)
  7. FOLIC ACID [Concomitant]
     Active Substance: FOLIC ACID
     Dosage: 1 MG, 2X/DAY
  8. PANTOPRAZOLE [Concomitant]
     Active Substance: PANTOPRAZOLE
     Dosage: 40 MG, 1X/DAY (40MG IN THE EVENING)
  9. LOSARTAN POTASSIUM [Concomitant]
     Active Substance: LOSARTAN POTASSIUM
     Indication: Cardiac disorder
     Dosage: 50 MG, 1X/DAY (50MG IN THE MORNING)
  10. LEVOTHYROXINE [Concomitant]
     Active Substance: LEVOTHYROXINE\LEVOTHYROXINE SODIUM
     Indication: Thyroid disorder
     Dosage: 75 MG, 1X/DAY (75MG IN THE MORNING)
  11. FUROSEMIDE [Concomitant]
     Active Substance: FUROSEMIDE
     Dosage: 20 MG, 1X/DAY (20MG IN THE MORNING)
  12. CLONAZEPAM [Concomitant]
     Active Substance: CLONAZEPAM
     Indication: Anxiety
     Dosage: 0.5 MG, AS NEEDED (0.5MG THREE TIMES A DAY AS NEEDED)
  13. AMITRIPTYLINE [Concomitant]
     Active Substance: AMITRIPTYLINE
     Indication: Sleep disorder
     Dosage: 50 MG, 1X/DAY (50MG IN EVENING)
  14. ACETAMINOPHEN\HYDROCODONE [Concomitant]
     Active Substance: ACETAMINOPHEN\HYDROCODONE
     Indication: Pain
     Dosage: UNK, AS NEEDED (5-325MG AS NEEDED)
  15. NAPROXEN [Concomitant]
     Active Substance: NAPROXEN
     Indication: Pain
     Dosage: 500 MG, AS NEEDED
  16. SUMATRIPTAN [Concomitant]
     Active Substance: SUMATRIPTAN\SUMATRIPTAN SUCCINATE
     Indication: Headache
     Dosage: 100 MG, AS NEEDED
  17. SUMATRIPTAN [Concomitant]
     Active Substance: SUMATRIPTAN\SUMATRIPTAN SUCCINATE
     Indication: Migraine
  18. IBUPROFEN [Concomitant]
     Active Substance: IBUPROFEN
     Indication: Pain
     Dosage: UNK, AS NEEDED (200 TO 800MG AS NEEDED)
  19. IBUPROFEN [Concomitant]
     Active Substance: IBUPROFEN
     Indication: Swelling
  20. VITAMIN D3 [Concomitant]
     Active Substance: CHOLECALCIFEROL
     Dosage: UNK, 2X/DAY (UP TO 10,000 IU TWICE A DAY)
  21. VITAMIN C [Concomitant]
     Active Substance: ASCORBIC ACID
     Dosage: UNK, DAILY
  22. CALCIUM [Concomitant]
     Active Substance: CALCIUM
     Dosage: UNK
  23. HUPERZINE A [Concomitant]
     Active Substance: HUPERZINE A
     Dosage: UNK

REACTIONS (9)
  - Unresponsive to stimuli [Unknown]
  - Aggression [Unknown]
  - Hallucination [Unknown]
  - Parkinson^s disease [Unknown]
  - Feeling abnormal [Unknown]
  - Nervousness [Unknown]
  - Anxiety [Not Recovered/Not Resolved]
  - Mood swings [Not Recovered/Not Resolved]
  - Delusional perception [Unknown]
